FAERS Safety Report 8775895 (Version 1)
Quarter: 2012Q4

REPORT INFORMATION
  Report Type: 
  Country: DE (occurrence: DE)
  Receive Date: 20120910
  Receipt Date: 20120910
  Transmission Date: 20130627
  Serious: Yes (Other)
  Sender: FDA-Public Use
  Company Number: DE-ASTRAZENECA-2012SE65851

PATIENT
  Age: 38 Year
  Sex: Female

DRUGS (2)
  1. SEROQUEL [Suspect]
     Indication: SCHIZOPHRENIA
     Route: 048
  2. ZELDOX [Suspect]
     Indication: SCHIZOPHRENIA
     Dates: start: 1992

REACTIONS (6)
  - Depressed level of consciousness [Unknown]
  - Mental retardation [Unknown]
  - Peripheral vascular disorder [Unknown]
  - Diarrhoea [Unknown]
  - Withdrawal syndrome [Unknown]
  - Drug dose omission [Unknown]
